FAERS Safety Report 23758196 (Version 1)
Quarter: 2024Q2

REPORT INFORMATION
  Report Type: Spontaneous
  Country: GB (occurrence: GB)
  Receive Date: 20240418
  Receipt Date: 20240418
  Transmission Date: 20240715
  Serious: Yes (Hospitalization, Other)
  Sender: FDA-Public Use
  Company Number: GB-MYLANLABS-2024M1003960

PATIENT
  Age: 58 Year
  Sex: Male

DRUGS (12)
  1. CLOZARIL [Suspect]
     Active Substance: CLOZAPINE
     Indication: Schizophrenia
     Dosage: UNK
     Route: 048
     Dates: start: 20230620
  2. CLOZARIL [Suspect]
     Active Substance: CLOZAPINE
     Dosage: 450 MILLIGRAM, QD (350 MG AND 100 MG)
     Route: 048
  3. CARBOCYSTEINE [Concomitant]
     Active Substance: CARBOCYSTEINE
     Dosage: 750 MILLIGRAM, TID (TDS)
     Route: 065
  4. DIAZEPAM [Concomitant]
     Active Substance: DIAZEPAM
     Dosage: 2 MILLIGRAM
     Route: 065
  5. DIAZEPAM [Concomitant]
     Active Substance: DIAZEPAM
     Dosage: 5 MILLIGRAM (UP TO 4 HOURLY (MAX 20MG/24HRS)
     Route: 065
  6. DOCUSATE SODIUM [Concomitant]
     Active Substance: DOCUSATE SODIUM
     Dosage: 100 MILLIGRAM, BID (BD)
     Route: 065
  7. ALBUTEROL SULFATE [Concomitant]
     Active Substance: ALBUTEROL SULFATE
     Dosage: 2.5 MILLILITER, QID (QDS)
     Route: 055
  8. TRELEGY ELLIPTA [Concomitant]
     Active Substance: FLUTICASONE FUROATE\UMECLIDINIUM BROMIDE\VILANTEROL TRIFENATATE
     Dosage: UNK, QD (ONCE DAILY)
     Route: 055
  9. OXYGEN [Concomitant]
     Active Substance: OXYGEN
     Dosage: 2-4 LITRES/MIN
     Route: 065
  10. LEVOMEPROMAZINE [Concomitant]
     Active Substance: LEVOMEPROMAZINE
     Dosage: 25 MILLIGRAM (UP TO 4 HOURLY (MAX 100MG/24HRS)
     Route: 065
  11. ALBUTEROL [Concomitant]
     Active Substance: ALBUTEROL
     Dosage: UNK, QID (NEBS X 4)
     Route: 055
  12. ENSURE [Concomitant]
     Active Substance: AMINO ACIDS\DEXTROSE\ELECTROLYTES NOS\SOYBEAN OIL\VITAMINS
     Dosage: UNK (3 /DAY IF NOT EATING)
     Route: 065

REACTIONS (3)
  - Chronic obstructive pulmonary disease [Recovered/Resolved]
  - Thrombocytopenia [Recovering/Resolving]
  - Haemoglobin increased [Recovered/Resolved]

NARRATIVE: CASE EVENT DATE: 20240108
